FAERS Safety Report 9775768 (Version 1)
Quarter: 2013Q4

REPORT INFORMATION
  Report Type: Spontaneous
  Country: AU (occurrence: AU)
  Receive Date: 20131220
  Receipt Date: 20131220
  Transmission Date: 20140711
  Serious: Yes (Hospitalization)
  Sender: FDA-Public Use
  Company Number: AU-009507513-1312AUS008107

PATIENT
  Age: 22 Year
  Sex: Male

DRUGS (3)
  1. ASENAPINE MALEATE [Suspect]
     Dosage: 20 MG, QD
     Route: 048
     Dates: start: 20130712, end: 2013
  2. SERTRALINE HYDROCHLORIDE [Concomitant]
     Dosage: 100 MG, QD
  3. TESTOSTERONE ENANTHATE [Concomitant]
     Dosage: 250 MG, FREQUENCY: EACH/EVERY

REACTIONS (2)
  - Migraine [Recovered/Resolved]
  - Confusional state [Recovered/Resolved]
